FAERS Safety Report 9834812 (Version 1)
Quarter: 2014Q1

REPORT INFORMATION
  Report Type: Spontaneous
  Country: US (occurrence: US)
  Receive Date: 20140122
  Receipt Date: 20140122
  Transmission Date: 20141002
  Serious: No
  Sender: FDA-Public Use
  Company Number: US-GILEAD-2014-0092528

PATIENT
  Age: 62 Year
  Sex: Male

DRUGS (4)
  1. SOVALDI [Suspect]
     Indication: CHRONIC HEPATITIS C
     Dosage: 800 MG, QD
     Route: 048
     Dates: start: 20140117, end: 20140117
  2. SOVALDI [Suspect]
     Dosage: 400 MG, QD
     Route: 048
  3. RIBAVIRIN [Concomitant]
  4. AMBIEN [Concomitant]
     Indication: SLEEP DISORDER

REACTIONS (2)
  - Memory impairment [Unknown]
  - Accidental overdose [Recovered/Resolved]
